FAERS Safety Report 6859288-X (Version None)
Quarter: 2010Q3

REPORT INFORMATION
  Report Type: 
  Country: None (occurrence: None)
  Receive Date: 20100719
  Receipt Date: 20080223
  Transmission Date: 20110219
  Serious: No
  Sender: FDA-Public Use
  Company Number: US-PFIZER INC-2008018938

PATIENT
  Sex: Female
  Weight: 62.1 kg

DRUGS (2)
  1. CHANTIX [Suspect]
     Indication: SMOKING CESSATION THERAPY
     Dates: start: 20080101, end: 20080223
  2. EFFEXOR [Concomitant]

REACTIONS (4)
  - ASTHENOPIA [None]
  - HEADACHE [None]
  - INSOMNIA [None]
  - NAUSEA [None]
